FAERS Safety Report 18304209 (Version 1)
Quarter: 2020Q3

REPORT INFORMATION
  Report Type: Spontaneous
  Country: SE (occurrence: SE)
  Receive Date: 20200923
  Receipt Date: 20200923
  Transmission Date: 20201103
  Serious: Yes (Other)
  Sender: FDA-Public Use
  Company Number: SE-BAYER-2020-196923

PATIENT
  Age: 28 Year
  Sex: Female
  Weight: 57 kg

DRUGS (1)
  1. MIRENA [Suspect]
     Active Substance: LEVONORGESTREL
     Indication: CONTRACEPTION
     Dosage: 20 ?G PER DAY CONTINUOUSLY
     Route: 015
     Dates: start: 201802, end: 201804

REACTIONS (4)
  - Dyspareunia [Recovered/Resolved with Sequelae]
  - Menorrhagia [Recovered/Resolved with Sequelae]
  - Panic attack [Recovered/Resolved with Sequelae]
  - Depression [Recovered/Resolved with Sequelae]

NARRATIVE: CASE EVENT DATE: 201802
